FAERS Safety Report 4458365-0 (Version None)
Quarter: 2004Q3

REPORT INFORMATION
  Report Type: 
  Country: None (occurrence: None)
  Receive Date: 20040924
  Receipt Date: 20040917
  Transmission Date: 20050211
  Serious: Yes (Hospitalization)
  Sender: FDA-Public Use
  Company Number: US-AMGEN-US092201

PATIENT
  Sex: Female
  Weight: 121.7 kg

DRUGS (6)
  1. EPOGEN [Suspect]
     Indication: PRE-EXISTING DISEASE
     Route: 058
     Dates: start: 20040101
  2. AVAPRO [Concomitant]
  3. INSULIN [Concomitant]
  4. FUROSEMIDE [Concomitant]
  5. PREVACID [Concomitant]
  6. AVANDIA [Concomitant]

REACTIONS (1)
  - GASTROINTESTINAL HAEMORRHAGE [None]
